FAERS Safety Report 6078375-X (Version None)
Quarter: 2009Q1

REPORT INFORMATION
  Report Type: 
  Country: None (occurrence: None)
  Receive Date: 20090213
  Receipt Date: 20090204
  Transmission Date: 20090719
  Serious: Yes (Other)
  Sender: FDA-Public Use
  Company Number: DE-JNJCH-2009003240

PATIENT
  Sex: Male

DRUGS (3)
  1. RHINOPRONT KOMBI [Suspect]
     Indication: WEIGHT DECREASED
     Dosage: TEXT:2 TABLETS TWICE DAILY
     Route: 048
  2. COFFEINUM N [Suspect]
     Indication: WEIGHT DECREASED
     Dosage: DAILY DOSE:.2GRAM-TEXT:TWICE DAILY
     Route: 048
  3. ASPIRIN [Suspect]
     Indication: WEIGHT DECREASED
     Dosage: DAILY DOSE:300MG-TEXT:TWICE DAILY
     Route: 048

REACTIONS (11)
  - BLOOD GLUCOSE INCREASED [None]
  - BLOOD PRESSURE SYSTOLIC INCREASED [None]
  - EPISTAXIS [None]
  - HEART RATE INCREASED [None]
  - INCREASED APPETITE [None]
  - INSOMNIA [None]
  - INTENTIONAL DRUG MISUSE [None]
  - MONOCYTE COUNT INCREASED [None]
  - TREMOR [None]
  - WEIGHT DECREASED [None]
  - WHITE BLOOD CELL COUNT INCREASED [None]
